FAERS Safety Report 12159001 (Version 1)
Quarter: 2016Q1

REPORT INFORMATION
  Report Type: Spontaneous
  Country: US (occurrence: None)
  Receive Date: 20160307
  Receipt Date: 20160307
  Transmission Date: 20160526
  Serious: No
  Sender: FDA-Public Use
  Company Number: None

PATIENT
  Age: 29 Year
  Sex: Female
  Weight: 90.72 kg

DRUGS (15)
  1. CLONAZEPAN [Suspect]
     Active Substance: CLONAZEPAM
     Indication: INSOMNIA
     Route: 048
     Dates: start: 20160210, end: 20160214
  2. RAW THYROID [Concomitant]
  3. OMEGA 3 - 6 - 9 [Concomitant]
  4. BONE DEFENSE [Concomitant]
  5. GINKGO SMART [Concomitant]
  6. THYROID SUPPORT [Concomitant]
     Active Substance: CALCIUM IODIDE\CAUSTICUM\FERROUS IODIDE\FUCUS VESICULOSUS\OYSTER SHELL CALCIUM CARBONATE, CRUDE\POTASSIUM IODIDE\SODIUM CHLORIDE\THYROID
  7. TRAZODONE [Concomitant]
     Active Substance: TRAZODONE HYDROCHLORIDE
  8. COLLAGEN [Concomitant]
     Active Substance: COLLAGEN
  9. ESCITALOPRAM [Concomitant]
     Active Substance: ESCITALOPRAM OXALATE
  10. SUPERIOR HAIR [Concomitant]
  11. HAS ORIGINAL BLEND [Concomitant]
  12. MELATONIN [Concomitant]
     Active Substance: MELATONIN
  13. CHAMOMILE TEA [Concomitant]
     Active Substance: MATRICARIA RECUTITA
  14. VITAMIN D [Concomitant]
     Active Substance: CHOLECALCIFEROL
  15. NATROL [Concomitant]

REACTIONS (1)
  - Sleep disorder [None]

NARRATIVE: CASE EVENT DATE: 20160210
